FAERS Safety Report 9302025 (Version 2)
Quarter: 2013Q4

REPORT INFORMATION
  Report Type: Spontaneous
  Country: US (occurrence: US)
  Receive Date: 20130521
  Receipt Date: 20131108
  Transmission Date: 20140711
  Serious: Yes (Death, Hospitalization, Other)
  Sender: FDA-Public Use
  Company Number: US-B.I. PHARMACEUTICALS,INC./RIDGEFIELD-2013-BI-14121BP

PATIENT
  Age: 91 Year
  Sex: Female
  Weight: 36.29 kg

DRUGS (9)
  1. PRADAXA [Suspect]
     Indication: ANTICOAGULANT THERAPY
     Dosage: 150 MG
     Route: 048
     Dates: start: 20120825, end: 20121010
  2. BUMEX [Concomitant]
     Dosage: 2 MG
     Route: 048
  3. ZANTAC [Concomitant]
     Dosage: 150 MG
     Route: 048
  4. MEGACE [Concomitant]
     Dosage: 400 MG
     Route: 048
  5. POTASSIUM CHLORIDE [Concomitant]
     Dosage: 40 MEQ
     Route: 048
  6. HYDROCODONE [Concomitant]
     Route: 048
  7. CLARITIN [Concomitant]
     Route: 048
  8. MULTIVITAMIN [Concomitant]
  9. CALCIUM [Concomitant]
     Route: 048

REACTIONS (4)
  - Gastrointestinal haemorrhage [Fatal]
  - Haemorrhagic anaemia [Fatal]
  - Renal failure acute [Unknown]
  - Haematuria [Unknown]
